FAERS Safety Report 4937066-6 (Version None)
Quarter: 2006Q1

REPORT INFORMATION
  Report Type: 
  Country: None (occurrence: None)
  Receive Date: 20060309
  Receipt Date: 20060224
  Transmission Date: 20060701
  Serious: Yes (Other)
  Sender: FDA-Public Use
  Company Number: US-MERCK-0602USA05914

PATIENT
  Age: 35 Year
  Sex: Female
  Weight: 73 kg

DRUGS (1)
  1. VIOXX [Suspect]
     Indication: MYOSITIS
     Route: 048
     Dates: end: 20011201

REACTIONS (3)
  - BREAST DISORDER [None]
  - MYOCARDIAL INFARCTION [None]
  - THROMBOSIS [None]
